FAERS Safety Report 13601724 (Version 1)
Quarter: 2017Q2

REPORT INFORMATION
  Report Type: Spontaneous
  Country: US (occurrence: US)
  Receive Date: 20170601
  Receipt Date: 20170601
  Transmission Date: 20170830
  Serious: No
  Sender: FDA-Public Use
  Company Number: US-BAUSCH-BL-2016-027472

PATIENT
  Age: 71 Year
  Sex: Female

DRUGS (1)
  1. ELIDEL [Suspect]
     Active Substance: PIMECROLIMUS
     Indication: DERMATITIS ATOPIC
     Dosage: TO AFFECTED AREAS
     Route: 061
     Dates: start: 201610

REACTIONS (8)
  - Eyelid irritation [Unknown]
  - Pain [Unknown]
  - Eye irritation [Not Recovered/Not Resolved]
  - Erythema of eyelid [Unknown]
  - Rhinorrhoea [Not Recovered/Not Resolved]
  - Drug dose omission [Unknown]
  - Lacrimation increased [Not Recovered/Not Resolved]
  - Eye disorder [Unknown]

NARRATIVE: CASE EVENT DATE: 201610
